FAERS Safety Report 4650650-2 (Version None)
Quarter: 2005Q2

REPORT INFORMATION
  Report Type: 
  Country: None (occurrence: None)
  Receive Date: 20050429
  Receipt Date: 20050429
  Transmission Date: 20051028
  Serious: Yes (Other)
  Sender: FDA-Public Use
  Company Number: None

PATIENT
  Age: 44 Year
  Sex: Female
  Weight: 75.7507 kg

DRUGS (5)
  1. GENERIC DURAGESIC PATCH [Suspect]
     Indication: NECK PAIN
     Dosage: 1 Q 2 DAYS PATCH
     Dates: start: 20050428
  2. VICODIN ES [Concomitant]
  3. EFFEXOR XR [Concomitant]
  4. ACCUPRIL [Concomitant]
  5. TOPROL-XL [Concomitant]

REACTIONS (2)
  - RASH [None]
  - THERAPEUTIC RESPONSE UNEXPECTED WITH DRUG SUBSTITUTION [None]
